FAERS Safety Report 11906191 (Version 1)
Quarter: 2016Q1

REPORT INFORMATION
  Report Type: Spontaneous
  Country: US (occurrence: None)
  Receive Date: 20160108
  Receipt Date: 20160108
  Transmission Date: 20160526
  Serious: Yes (Life-Threatening, Hospitalization, Other)
  Sender: FDA-Public Use
  Company Number: None

PATIENT
  Age: 53 Year
  Sex: Male
  Weight: 97.07 kg

DRUGS (9)
  1. PERCOCET [Concomitant]
     Active Substance: ACETAMINOPHEN\OXYCODONE HYDROCHLORIDE
  2. KENALOG [Suspect]
     Active Substance: TRIAMCINOLONE ACETONIDE
     Indication: PAIN
     Dosage: 80MG ONCE @ TIME OF INJ EPIDURAL
     Route: 008
     Dates: start: 20151111, end: 20151210
  3. CRESTOR [Concomitant]
     Active Substance: ROSUVASTATIN CALCIUM
  4. MULTIVITAMIN [Concomitant]
     Active Substance: VITAMINS
  5. SOMA [Concomitant]
     Active Substance: CARISOPRODOL
  6. SODIUM CHLORIDE. [Concomitant]
     Active Substance: SODIUM CHLORIDE
  7. LIDOCAINE 1% HOSPIRA, INC [Suspect]
     Active Substance: LIDOCAINE
     Indication: PAIN
     Dosage: 2ML ONCE @ TIME OF INJ EPIDURAL
     Route: 008
     Dates: start: 20151111, end: 20151210
  8. OMNIPAQUE [Suspect]
     Active Substance: IOHEXOL
     Indication: PAIN
     Dosage: 0.5ML ONCE @ TIME OF INJ EPIDURAL
     Route: 008
     Dates: start: 20151111, end: 20151210
  9. ASA [Concomitant]
     Active Substance: ASPIRIN

REACTIONS (11)
  - Fungal test positive [None]
  - Pyrexia [None]
  - Back pain [None]
  - Malaise [None]
  - Osteomyelitis [None]
  - Arterial occlusive disease [None]
  - Product contamination [None]
  - Fatigue [None]
  - Intervertebral discitis [None]
  - Cardiac valve vegetation [None]
  - Aspergillus infection [None]

NARRATIVE: CASE EVENT DATE: 20151228
